FAERS Safety Report 14691360 (Version 1)
Quarter: 2018Q1

REPORT INFORMATION
  Report Type: Spontaneous
  Country: US (occurrence: US)
  Receive Date: 20180327
  Receipt Date: 20180327
  Transmission Date: 20180509
  Serious: Yes (Death)
  Sender: FDA-Public Use
  Company Number: None

PATIENT
  Age: 31 Year
  Sex: Male

DRUGS (6)
  1. CAYSTON [Suspect]
     Active Substance: AZTREONAM
     Indication: CYSTIC FIBROSIS
     Dosage: 1 VIAL TID INHALED
     Route: 055
     Dates: start: 20130807, end: 201803
  2. PULMOZYME [Concomitant]
     Active Substance: DORNASE ALFA
  3. TOBI PODHALER [Suspect]
     Active Substance: TOBRAMYCIN
     Indication: CYSTIC FIBROSIS
     Dosage: 4 CAPS BID INHALED
     Route: 055
     Dates: start: 20180117, end: 201802
  4. CIPROFLOXACIN. [Concomitant]
     Active Substance: CIPROFLOXACIN
  5. DOXYCYCLINE. [Concomitant]
     Active Substance: DOXYCYCLINE
  6. MEPHYTON [Concomitant]
     Active Substance: PHYTONADIONE

REACTIONS (1)
  - Death [None]

NARRATIVE: CASE EVENT DATE: 20180316
